FAERS Safety Report 12071891 (Version 7)
Quarter: 2017Q2

REPORT INFORMATION
  Report Type: Report from Study
  Country: CA (occurrence: CA)
  Receive Date: 20160212
  Receipt Date: 20170626
  Transmission Date: 20170829
  Serious: Yes (Hospitalization, Other)
  Sender: FDA-Public Use
  Company Number: CA-ROCHE-1653796

PATIENT
  Age: 72 Year
  Sex: Female

DRUGS (19)
  1. DIPHENHYDRAMINE HCL [Concomitant]
     Active Substance: DIPHENHYDRAMINE HYDROCHLORIDE
     Indication: PREMEDICATION
     Route: 048
     Dates: start: 20151029
  2. LUTEIN [Concomitant]
     Active Substance: LUTEIN
  3. SULFASALAZINE. [Concomitant]
     Active Substance: SULFASALAZINE
  4. AMLODIPINE [Concomitant]
     Active Substance: AMLODIPINE BESYLATE
  5. FISH OIL [Concomitant]
     Active Substance: FISH OIL
  6. PREDNISONE. [Concomitant]
     Active Substance: PREDNISONE
     Route: 065
  7. TRIAZIDE [Concomitant]
  8. ATIVAN [Concomitant]
     Active Substance: LORAZEPAM
  9. METHYLPREDNISOLONE. [Concomitant]
     Active Substance: METHYLPREDNISOLONE
     Indication: PREMEDICATION
     Route: 042
     Dates: start: 20151029
  10. PRESERVISION [Concomitant]
     Active Substance: MINERALS\VITAMINS
  11. RITUXAN [Suspect]
     Active Substance: RITUXIMAB
     Indication: RHEUMATOID ARTHRITIS
     Dosage: PREVIOUS RITUXIMAB DOSE WAS RECEIVED ON 26-APR-2017.
     Route: 042
     Dates: start: 20151029
  12. RABEPRAZOLE [Concomitant]
     Active Substance: RABEPRAZOLE
  13. ACETAMINOPHEN. [Concomitant]
     Active Substance: ACETAMINOPHEN
     Indication: PREMEDICATION
     Route: 048
     Dates: start: 20151029
  14. PREDNISONE. [Concomitant]
     Active Substance: PREDNISONE
     Dosage: FOR 6 DAYS
     Route: 065
  15. ACTONEL [Concomitant]
     Active Substance: RISEDRONATE SODIUM
  16. ELTROXIN [Concomitant]
     Active Substance: LEVOTHYROXINE
  17. SYNTHROID [Concomitant]
     Active Substance: LEVOTHYROXINE SODIUM
  18. MELOXICAM. [Concomitant]
     Active Substance: MELOXICAM
  19. IMURAN [Concomitant]
     Active Substance: AZATHIOPRINE

REACTIONS (17)
  - Blood pressure fluctuation [Unknown]
  - Nervousness [Unknown]
  - Loss of personal independence in daily activities [Unknown]
  - Blood pressure diastolic increased [Unknown]
  - Pneumonia [Unknown]
  - Dyspnoea [Not Recovered/Not Resolved]
  - Arthralgia [Recovering/Resolving]
  - Swelling [Not Recovered/Not Resolved]
  - Joint swelling [Unknown]
  - Peripheral swelling [Recovering/Resolving]
  - Heart rate irregular [Unknown]
  - Fatigue [Recovering/Resolving]
  - Respiratory disorder [Unknown]
  - Cardiac failure congestive [Recovered/Resolved]
  - Herpes zoster [Recovering/Resolving]
  - Arthralgia [Not Recovered/Not Resolved]
  - Nausea [Recovering/Resolving]

NARRATIVE: CASE EVENT DATE: 20151029
